FAERS Safety Report 9217047 (Version 2)
Quarter: 2013Q2

REPORT INFORMATION
  Report Type: Spontaneous
  Country: JP (occurrence: JP)
  Receive Date: 20130408
  Receipt Date: 20130423
  Transmission Date: 20140414
  Serious: Yes (Death, Hospitalization)
  Sender: FDA-Public Use
  Company Number: JP-ELI_LILLY_AND_COMPANY-JP201304001189

PATIENT
  Age: 83 Year
  Sex: Male
  Weight: 54.3 kg

DRUGS (11)
  1. ALIMTA [Suspect]
     Indication: LUNG ADENOCARCINOMA STAGE III
     Dosage: 760 MG, OTHER
     Route: 042
     Dates: start: 20121016, end: 20130110
  2. ALIMTA [Suspect]
     Dosage: 760 MG, UNK
     Route: 042
     Dates: start: 20130214, end: 20130314
  3. CARBOPLATIN [Concomitant]
     Indication: LUNG ADENOCARCINOMA STAGE III
     Dosage: 350 MG, UNK
     Route: 042
     Dates: start: 20121016, end: 20130110
  4. METHYCOBAL [Concomitant]
     Dosage: 1000 UG, UNK
     Route: 030
     Dates: start: 20121009
  5. FOLIAMIN [Concomitant]
     Dosage: 0.5 MG, QD
     Route: 048
     Dates: start: 20121009, end: 20130330
  6. ITOROL [Concomitant]
     Dosage: 20 MG, BID
     Route: 048
     Dates: start: 201204
  7. GASTER [Concomitant]
     Dosage: 20 MG, BID
     Route: 048
     Dates: start: 201204
  8. BAYASPIRIN [Concomitant]
     Dosage: 100 MG, QD
     Route: 048
     Dates: start: 201204
  9. LIVALO [Concomitant]
     Dosage: 2 MG, UNK
     Route: 048
     Dates: start: 201204
  10. GLACTIV [Concomitant]
     Dosage: 50 MG, QD
     Route: 048
     Dates: start: 201209
  11. PLAVIX [Concomitant]
     Dosage: 75 MG, QD
     Route: 048
     Dates: start: 201204

REACTIONS (2)
  - Myocardial infarction [Fatal]
  - Platelet count decreased [Unknown]
